FAERS Safety Report 10104115 (Version 2)
Quarter: 2014Q3

REPORT INFORMATION
  Report Type: Other
  Country: US (occurrence: US)
  Receive Date: 20140424
  Receipt Date: 20140831
  Transmission Date: 20150326
  Serious: Yes (Hospitalization, Other)
  Sender: FDA-Public Use
  Company Number: US-GSKPPD-2014GSK004905

PATIENT
  Age: 71 Year
  Sex: Male

DRUGS (10)
  1. AVANDAMET [Suspect]
     Active Substance: METFORMIN HYDROCHLORIDE\ROSIGLITAZONE MALEATE
     Dosage: DATES OF AVANDAMET/AVANDARYL (CHOOSE THE COMBO) USE COULD NOT BE CONFIRMED IN RECORDS REVIEWED
  2. PERSANTINE [Concomitant]
     Active Substance: DIPYRIDAMOLE
  3. LASIX [Concomitant]
     Active Substance: FUROSEMIDE
  4. ASPIRIN. [Concomitant]
     Active Substance: ASPIRIN
  5. LOTENSIN [Concomitant]
     Active Substance: BENAZEPRIL HYDROCHLORIDE
  6. LOPRESSOR [Concomitant]
     Active Substance: METOPROLOL TARTRATE
  7. NITROGLYCERIN. [Concomitant]
     Active Substance: NITROGLYCERIN
  8. AVANDIA [Suspect]
     Active Substance: ROSIGLITAZONE MALEATE
     Indication: DIABETES MELLITUS
     Dosage: DATE OF AVANDIA USE COULD NOT BE CONFIRMED IN RECORDS REVIEWED.
     Route: 048
  9. DIGOXIN. [Concomitant]
     Active Substance: DIGOXIN
  10. ALDACTONE [Concomitant]
     Active Substance: SPIRONOLACTONE

REACTIONS (1)
  - Myocardial infarction [Recovered/Resolved]

NARRATIVE: CASE EVENT DATE: 20010414
